FAERS Safety Report 4652512-3 (Version None)
Quarter: 2005Q2

REPORT INFORMATION
  Report Type: 
  Country: None (occurrence: None)
  Receive Date: 20050502
  Receipt Date: 20050415
  Transmission Date: 20051028
  Serious: Yes (Hospitalization)
  Sender: FDA-Public Use
  Company Number: DSA_26074_2005

PATIENT
  Age: 77 Year
  Sex: Female

DRUGS (2)
  1. MONO-TILDIEM [Suspect]
     Dosage: DF PO
     Route: 048
     Dates: start: 20050104, end: 20050115
  2. TOPALGIC ^HOUDE^ [Suspect]
     Dosage: 1DF Q DAY PO
     Route: 048
     Dates: start: 20050104, end: 20050115

REACTIONS (10)
  - ACUTE GENERALISED EXANTHEMATOUS PUSTULOSIS [None]
  - C-REACTIVE PROTEIN INCREASED [None]
  - DERMATITIS EXFOLIATIVE [None]
  - LEUKOCYTOSIS [None]
  - LIVER FUNCTION TEST ABNORMAL [None]
  - PYREXIA [None]
  - RASH PAPULOSQUAMOUS [None]
  - RASH PUSTULAR [None]
  - RED BLOOD CELL SEDIMENTATION RATE INCREASED [None]
  - SEBORRHOEIC KERATOSIS [None]
